FAERS Safety Report 6371584-1 (Version None)
Quarter: 2009Q3

REPORT INFORMATION
  Report Type: 
  Country: None (occurrence: None)
  Receive Date: 20090923
  Receipt Date: 20080214
  Transmission Date: 20100115
  Serious: Yes (Other)
  Sender: FDA-Public Use
  Company Number: US-ASTRAZENECA-2007UW19701

PATIENT
  Age: 17097 Day
  Sex: Male

DRUGS (27)
  1. SEROQUEL [Suspect]
     Indication: SLEEP DISORDER
     Route: 048
     Dates: start: 20020216, end: 20040601
  2. SEROQUEL [Suspect]
     Indication: INSOMNIA
     Route: 048
     Dates: start: 20020216, end: 20040601
  3. SEROQUEL [Suspect]
     Dosage: 50-300 MG
     Route: 048
     Dates: start: 20021118, end: 20040607
  4. SEROQUEL [Suspect]
     Dosage: 50-300 MG
     Route: 048
     Dates: start: 20021118, end: 20040607
  5. ADDERALL XR 30 [Concomitant]
     Dosage: 20-40 MG
     Dates: start: 20030812
  6. TENORMIN [Concomitant]
     Indication: TACHYCARDIA
     Dosage: 12.5- 75MG
     Dates: start: 20011217
  7. GEODON [Concomitant]
     Dates: start: 20021022, end: 20021111
  8. GEODON [Concomitant]
     Dates: start: 20021118
  9. CONCERTA [Concomitant]
     Dosage: 10-36 MG
     Dates: start: 20020928, end: 20021111
  10. CONCERTA [Concomitant]
     Dates: start: 20021118
  11. XANAX [Concomitant]
     Dosage: 1-4 MG
     Dates: start: 20011204, end: 20021118
  12. EFFEXOR XR [Concomitant]
     Indication: ANTIDEPRESSANT THERAPY
     Dosage: 37.5 MG-300 MG
     Dates: start: 20020827
  13. LAMICTAL [Concomitant]
     Dosage: 25-300 MG
     Dates: start: 20021111
  14. ZOLOFT [Concomitant]
     Indication: ANTIDEPRESSANT THERAPY
     Dosage: 150-200 MG
     Dates: start: 20020727
  15. RISPERDAL [Concomitant]
     Indication: ANTIDEPRESSANT THERAPY
     Dates: start: 20020727
  16. PROZAC [Concomitant]
     Dates: start: 20020108
  17. AMITRIPTYLINE HCL [Concomitant]
     Dosage: 150 M
     Dates: start: 20020202
  18. RESTORIL [Concomitant]
     Indication: INSOMNIA
     Dates: start: 20021015
  19. ZONEGRAN [Concomitant]
     Dates: start: 20040607
  20. PAXIL [Concomitant]
     Indication: ANTIDEPRESSANT THERAPY
     Dates: start: 20021015
  21. LUVOX [Concomitant]
     Indication: ANTIDEPRESSANT THERAPY
     Dates: start: 20021015
  22. REMERON [Concomitant]
     Indication: ANTIDEPRESSANT THERAPY
     Dates: start: 20021015
  23. SERZONE [Concomitant]
     Indication: ANTIDEPRESSANT THERAPY
     Dates: start: 20021015
  24. CELEXA [Concomitant]
     Indication: ANTIDEPRESSANT THERAPY
     Dates: start: 20021015
  25. WELLBUTRIN [Concomitant]
     Indication: ANTIDEPRESSANT THERAPY
     Dates: start: 20021015
  26. ABILIFY [Concomitant]
     Dates: start: 20040607
  27. TRAZODONE [Concomitant]
     Indication: SLEEP DISORDER
     Dates: start: 20040607

REACTIONS (3)
  - BLOOD GLUCOSE INCREASED [None]
  - DIABETES MELLITUS [None]
  - TYPE 2 DIABETES MELLITUS [None]
